FAERS Safety Report 15693712 (Version 2)
Quarter: 2018Q4

REPORT INFORMATION
  Report Type: Spontaneous
  Country: ES (occurrence: ES)
  Receive Date: 20181206
  Receipt Date: 20181225
  Transmission Date: 20190205
  Serious: Yes (Hospitalization)
  Sender: FDA-Public Use
  Company Number: ES-AUROBINDO-AUR-APL-2018-058696

PATIENT
  Age: 87 Year
  Sex: Male

DRUGS (5)
  1. QUETIAPINE 100 MG FILM-COATED TABLETS [Suspect]
     Active Substance: QUETIAPINE
     Indication: PRODUCT USED FOR UNKNOWN INDICATION
     Dosage: 50 MILLIGRAM, TWO TIMES A DAY
     Route: 048
     Dates: start: 20180521, end: 20180912
  2. ADIRO [Concomitant]
     Active Substance: ASPIRIN
     Indication: ANGINA PECTORIS
     Dosage: 1 DOSAGE FORM, ONCE A DAY, GASTRORESISTANT TABLETS EFG, 30 TABLETS
     Route: 048
     Dates: start: 20160922
  3. LANTUS [Concomitant]
     Active Substance: INSULIN GLARGINE
     Indication: DIABETES MELLITUS
     Dosage: 100 UNITS / ML SOLUTION FOR INJECTION IN PRE-FILLED PEN, 5 PRE-FILLED PENS OF 3 ML
     Route: 058
     Dates: start: 20131206
  4. SECALIP SUPRA [Concomitant]
     Active Substance: FENOFIBRATE
     Indication: TYPE V HYPERLIPIDAEMIA
     Dosage: 160 MILLIGRAM, ONCE A DAY, FILM-COATED TABLETS, 30 TABLETS
     Route: 048
     Dates: start: 20160622
  5. OMEPRAZOL                          /00661201/ [Concomitant]
     Active Substance: OMEPRAZOLE
     Indication: PRODUCT USED FOR UNKNOWN INDICATION
     Dosage: 1 DOSAGE FORM, ONCE A DAY
     Route: 048
     Dates: start: 20150312

REACTIONS (1)
  - Confusional state [Recovered/Resolved]

NARRATIVE: CASE EVENT DATE: 20180904
